FAERS Safety Report 8582362-7 (Version None)
Quarter: 2012Q3

REPORT INFORMATION
  Report Type: 
  Country: None (occurrence: None)
  Receive Date: 20120809
  Receipt Date: 20120802
  Transmission Date: 20120928
  Serious: Yes (Death, Life-Threatening, Hospitalization)
  Sender: FDA-Public Use
  Company Number: US-GLAXOSMITHKLINE-A0771572A

PATIENT
  Age: 69 Year
  Sex: Female
  Weight: 96.8 kg

DRUGS (3)
  1. RADIATION [Suspect]
     Indication: METASTASES TO CENTRAL NERVOUS SYSTEM
     Dosage: 3GY PER DAY
     Route: 061
     Dates: start: 20090218, end: 20090227
  2. TOPOTECAN HYDROCHLORIDE [Suspect]
     Indication: METASTASES TO CENTRAL NERVOUS SYSTEM
     Dosage: 2.3MGM2 PER DAY
     Route: 048
     Dates: start: 20090218, end: 20090227
  3. STEROID [Concomitant]

REACTIONS (10)
  - ANAEMIA [None]
  - ACCIDENTAL OVERDOSE [None]
  - LUNG CANCER METASTATIC [None]
  - THROMBOCYTOPENIA [None]
  - MUSCULAR WEAKNESS [None]
  - ASTHENIA [None]
  - SEPSIS [None]
  - CONDITION AGGRAVATED [None]
  - CONFUSIONAL STATE [None]
  - LEUKOPENIA [None]
